FAERS Safety Report 5778508-6 (Version None)
Quarter: 2008Q2

REPORT INFORMATION
  Report Type: 
  Country: None (occurrence: None)
  Receive Date: 20080619
  Receipt Date: 20080612
  Transmission Date: 20081010
  Serious: Yes (Life-Threatening)
  Sender: FDA-Public Use
  Company Number: FR-AVENTIS-200812223FR

PATIENT
  Age: 64 Year
  Sex: Male

DRUGS (3)
  1. LOVENOX [Suspect]
     Route: 058
     Dates: start: 20080106, end: 20080325
  2. PREVISCAN                          /00789001/ [Suspect]
     Route: 048
     Dates: start: 20080321, end: 20080325
  3. PROPOXYPHENE HCL AND ACETAMINOPHEN [Concomitant]
     Route: 048
     Dates: start: 20080320, end: 20080325

REACTIONS (4)
  - ANAEMIA [None]
  - DRUG INTERACTION [None]
  - INTERNATIONAL NORMALISED RATIO INCREASED [None]
  - RECTAL HAEMORRHAGE [None]
